FAERS Safety Report 4277712-6 (Version None)
Quarter: 2004Q1

REPORT INFORMATION
  Report Type: 
  Country: None (occurrence: None)
  Receive Date: 20040123
  Receipt Date: 20031126
  Transmission Date: 20041129
  Serious: Yes (Life-Threatening, Hospitalization, Other)
  Sender: FDA-Public Use
  Company Number: PHBS2003JP13249

PATIENT
  Age: 59 Year
  Sex: Male
  Weight: 50 kg

DRUGS (13)
  1. SANDIMMUNE [Concomitant]
     Indication: STEM CELL TRANSPLANT
     Dosage: 159 MG/D
     Route: 042
     Dates: start: 20030702, end: 20030703
  2. NEORAL [Suspect]
     Indication: STEM CELL TRANSPLANT
     Dosage: 370 MG/D
     Route: 048
     Dates: start: 20030704, end: 20030701
  3. NEORAL [Suspect]
     Dosage: 200 MG/D
     Route: 048
     Dates: start: 20031025, end: 20031028
  4. NEORAL [Suspect]
     Dosage: 150 MG/D
     Route: 048
     Dates: start: 20031029, end: 20031120
  5. NEORAL [Suspect]
     Dosage: 80 MG/D
     Route: 048
     Dates: start: 20030701, end: 20031024
  6. NEORAL [Suspect]
     Dosage: 75 MG/D
     Route: 048
     Dates: start: 20031121, end: 20031123
  7. NEORAL [Suspect]
     Dosage: 125 MG/D
     Route: 048
     Dates: start: 20031124, end: 20031124
  8. NEORAL [Suspect]
     Dosage: 100 MG/D
     Dates: start: 20031125, end: 20031125
  9. NEORAL [Suspect]
     Dates: start: 20031126, end: 20031126
  10. RED BLOOD CELLS [Concomitant]
  11. FLUDARABINE PHOSPHATE [Concomitant]
     Route: 042
     Dates: start: 20030625, end: 20030630
  12. BUSULFAN [Concomitant]
     Route: 048
     Dates: start: 20030627, end: 20030628
  13. BAKTAR [Concomitant]
     Route: 048
     Dates: start: 20030718, end: 20031123

REACTIONS (13)
  - ANAEMIA [None]
  - ATRIAL FIBRILLATION [None]
  - CHEST DISCOMFORT [None]
  - GASTRIC ULCER [None]
  - LIVER DISORDER [None]
  - PERICARDIAL EFFUSION [None]
  - PERICARDIAL HAEMORRHAGE [None]
  - PERICARDITIS [None]
  - PLEURAL EFFUSION [None]
  - RASH [None]
  - RIGHT VENTRICULAR FAILURE [None]
  - URINE OUTPUT DECREASED [None]
  - VIRAL INFECTION [None]
